FAERS Safety Report 6550943-8 (Version None)
Quarter: 2010Q1

REPORT INFORMATION
  Report Type: 
  Country: None (occurrence: None)
  Receive Date: 20100121
  Receipt Date: 20100104
  Transmission Date: 20100710
  Serious: Yes (Death)
  Sender: FDA-Public Use
  Company Number: 2010SCPR000136

PATIENT
  Age: 51 Year
  Sex: Female

DRUGS (11)
  1. DOXEPIN (DOXEPIN HYDROCHLORIDE) UNKNOWN [Suspect]
     Indication: DRUG USE FOR UNKNOWN INDICATION
  2. CLONAZEPAM [Suspect]
     Indication: DRUG USE FOR UNKNOWN INDICATION
  3. ETHANOL (ETHANOL) UNKNOWN [Suspect]
     Indication: DRUG USE FOR UNKNOWN INDICATION
  4. CLONIDINE [Suspect]
     Indication: DRUG USE FOR UNKNOWN INDICATION
  5. DRUG, UNKNOWN (DRUG, UNKNOWN) UNKNOWN [Suspect]
     Indication: DRUG USE FOR UNKNOWN INDICATION
  6. DIPHENHYDRAMINE HCL [Suspect]
     Indication: DRUG USE FOR UNKNOWN INDICATION
  7. SILDENAFIL (SILDENAFIL) UNKNOWN [Suspect]
     Indication: DRUG USE FOR UNKNOWN INDICATION
  8. SERTRALINE (SERTRALINE) UNKNOWN [Suspect]
     Indication: DRUG USE FOR UNKNOWN INDICATION
  9. DULOXETINE (DULOXETINE) UNKNOWN [Suspect]
     Indication: DRUG USE FOR UNKNOWN INDICATION
  10. OXYBUTYNIN [Suspect]
     Indication: DRUG USE FOR UNKNOWN INDICATION
  11. ESCITALOPRAM [Suspect]
     Indication: DRUG USE FOR UNKNOWN INDICATION

REACTIONS (4)
  - CARDIAC ARREST [None]
  - DRUG TOXICITY [None]
  - POISONING [None]
  - RESPIRATORY ARREST [None]
